FAERS Safety Report 15879852 (Version 4)
Quarter: 2019Q2

REPORT INFORMATION
  Report Type: Report from Study
  Country: GB (occurrence: GB)
  Receive Date: 20190128
  Receipt Date: 20190401
  Transmission Date: 20190711
  Serious: Yes (Other)
  Sender: FDA-Public Use
  Company Number: GB-IPSEN BIOPHARMACEUTICALS, INC.-2019-00074

PATIENT
  Age: 66 Year
  Sex: Female
  Weight: 100 kg

DRUGS (8)
  1. SOMATULINE AUTOGEL 120MG [Suspect]
     Active Substance: LANREOTIDE ACETATE
     Indication: NEUROENDOCRINE TUMOUR
     Route: 058
     Dates: start: 20181204
  2. LEVOTHYROXINE. [Concomitant]
     Active Substance: LEVOTHYROXINE
  3. FELODIPINE. [Concomitant]
     Active Substance: FELODIPINE
  4. LOSARTAN. [Concomitant]
     Active Substance: LOSARTAN
  5. GLICLAZIDE [Concomitant]
     Active Substance: GLICLAZIDE
  6. METFORMIN [Concomitant]
     Active Substance: METFORMIN HYDROCHLORIDE
  7. CLOPIDOGREL [Concomitant]
     Active Substance: CLOPIDOGREL BISULFATE
  8. LANSOPRAZOLE. [Concomitant]
     Active Substance: LANSOPRAZOLE

REACTIONS (18)
  - Abdominal pain [Recovered/Resolved]
  - Lung disorder [Unknown]
  - Diarrhoea [Recovered/Resolved]
  - Abdominal distension [Recovered/Resolved]
  - Rash [Unknown]
  - Nausea [Recovered/Resolved]
  - Frequent bowel movements [Recovered/Resolved]
  - Abdominal pain [Recovered/Resolved]
  - Abdominal distension [Recovered/Resolved]
  - Injection site pain [Recovered/Resolved]
  - Flatulence [Unknown]
  - Alopecia [Unknown]
  - Blood glucose increased [Not Recovered/Not Resolved]
  - Hyperventilation [Recovered/Resolved]
  - Pancreatic failure [Not Recovered/Not Resolved]
  - Steatorrhoea [Recovered/Resolved]
  - Dyspnoea [Unknown]
  - Injection site mass [Unknown]

NARRATIVE: CASE EVENT DATE: 201812
